FAERS Safety Report 14527176 (Version 1)
Quarter: 2018Q1

REPORT INFORMATION
  Report Type: Spontaneous
  Country: US (occurrence: US)
  Receive Date: 20180213
  Receipt Date: 20180213
  Transmission Date: 20180509
  Serious: Yes (Life-Threatening, Hospitalization, Disabling, Congenital Anomaly, Other)
  Sender: FDA-Public Use
  Company Number: None

PATIENT
  Age: 60 Year
  Sex: Female
  Weight: 104.33 kg

DRUGS (3)
  1. RISPERDAL CONSTA [Suspect]
     Active Substance: RISPERIDONE
     Indication: FEELING GUILTY
     Dosage: PILLS TWICE DAILY PILLS BY MOUTH + CONSTA INJECTION IN BUTT
     Route: 048
  2. ALEVE [Concomitant]
     Active Substance: NAPROXEN SODIUM
  3. RISPERDAL CONSTA [Suspect]
     Active Substance: RISPERIDONE
     Indication: ANGER
     Dosage: PILLS TWICE DAILY PILLS BY MOUTH + CONSTA INJECTION IN BUTT
     Route: 048

REACTIONS (2)
  - Weight increased [None]
  - Paralysis [None]

NARRATIVE: CASE EVENT DATE: 1979
